FAERS Safety Report 8209186-4 (Version None)
Quarter: 2012Q1

REPORT INFORMATION
  Report Type: 
  Country: None (occurrence: None)
  Receive Date: 20120314
  Receipt Date: 20120305
  Transmission Date: 20120608
  Serious: Yes (Hospitalization, Other)
  Sender: FDA-Public Use
  Company Number: US-BAYER-2011-090054

PATIENT
  Age: 23 Year
  Sex: Female
  Weight: 81.633 kg

DRUGS (5)
  1. YAZ [Suspect]
     Route: 048
  2. YAZ [Suspect]
     Route: 048
  3. YASMIN [Suspect]
     Indication: POLYCYSTIC OVARIES
     Dosage: UNK
     Route: 048
     Dates: start: 20080101, end: 20100801
  4. YAZ [Suspect]
     Indication: POLYCYSTIC OVARIES
     Dosage: UNK
     Route: 048
     Dates: start: 20040101, end: 20080101
  5. YAZ [Suspect]
     Route: 048

REACTIONS (6)
  - ABDOMINAL PAIN [None]
  - NAUSEA [None]
  - BILIARY DILATATION [None]
  - CHOLECYSTITIS ACUTE [None]
  - BILE DUCT STONE [None]
  - CHOLELITHIASIS [None]
